FAERS Safety Report 9751531 (Version 1)
Quarter: 2013Q4

REPORT INFORMATION
  Report Type: Spontaneous
  Country: US (occurrence: US)
  Receive Date: 20131212
  Receipt Date: 20131212
  Transmission Date: 20140711
  Serious: No
  Sender: FDA-Public Use
  Company Number: US-PURDUE-USA-2013-0103659

PATIENT
  Sex: Male

DRUGS (1)
  1. DILAUDID TABLET [Suspect]
     Indication: PRODUCT USED FOR UNKNOWN INDICATION
     Dosage: 2 MG, UNK
     Route: 048

REACTIONS (2)
  - Fatigue [Unknown]
  - Somnolence [Unknown]
